FAERS Safety Report 9562873 (Version 1)
Quarter: 2013Q3

REPORT INFORMATION
  Report Type: Spontaneous
  Country: JP (occurrence: JP)
  Receive Date: 20130927
  Receipt Date: 20130927
  Transmission Date: 20140515
  Serious: Yes (Hospitalization)
  Sender: FDA-Public Use
  Company Number: JP-PFIZER INC-2013276604

PATIENT
  Age: 76 Year
  Sex: Female

DRUGS (9)
  1. CELECOX [Suspect]
     Indication: RHEUMATOID ARTHRITIS
     Dosage: 400 MG, DAILY
     Route: 048
  2. PROGRAF [Suspect]
     Dosage: 1.5 MG, UID/QD
     Route: 048
     Dates: end: 20130903
  3. CORTICOSTEROID NOS [Concomitant]
  4. ZITHROMAC [Concomitant]
  5. PROTECADIN [Concomitant]
  6. SELBEX [Concomitant]
     Route: 048
  7. FEBURIC [Concomitant]
  8. LANSOPRAZOLE [Concomitant]
  9. METHOTREXATE [Concomitant]

REACTIONS (1)
  - Adrenal insufficiency [Recovering/Resolving]
